FAERS Safety Report 23436325 (Version 1)
Quarter: 2024Q1

REPORT INFORMATION
  Report Type: Spontaneous
  Country: ES (occurrence: ES)
  Receive Date: 20240124
  Receipt Date: 20240124
  Transmission Date: 20240410
  Serious: Yes (Hospitalization, Other)
  Sender: FDA-Public Use
  Company Number: ES-AEMPS-1462645

PATIENT
  Age: 78 Year
  Sex: Female

DRUGS (7)
  1. AMIODARONE [Suspect]
     Active Substance: AMIODARONE
     Indication: Atrial fibrillation
     Dosage: 900.0 MILLIGRAM
     Route: 065
     Dates: start: 20230712, end: 20230713
  2. OMEPRAZOLE [Concomitant]
     Active Substance: OMEPRAZOLE
     Indication: Gastrooesophageal reflux disease
     Dosage: 20.0 MILLIGRAM (A-DE)
     Route: 048
     Dates: start: 20230208
  3. DAPAGLIFLOZIN [Concomitant]
     Active Substance: DAPAGLIFLOZIN
     Indication: Cardiac failure
     Dosage: 10.0 MILLIGRAM (C/24 H)
     Route: 048
     Dates: start: 20230617
  4. VIDESIL [Concomitant]
     Indication: Vitamin D decreased
     Dosage: 50000.0 INTERNATIONAL UNIT (C/15 DIAS)
     Route: 048
     Dates: start: 20180704
  5. NALOXONE HYDROCHLORIDE\OXYCODONE HYDROCHLORIDE [Concomitant]
     Active Substance: NALOXONE HYDROCHLORIDE\OXYCODONE HYDROCHLORIDE
     Indication: Osteoarthritis
     Dosage: 5.0 MILLIGRAM ( C/12 H)
     Route: 048
     Dates: start: 20190715
  6. LINACLOTIDE [Concomitant]
     Active Substance: LINACLOTIDE
     Indication: Irritable bowel syndrome
     Dosage: UNK (290.0 MCG A-DE )
     Route: 048
     Dates: start: 20191024
  7. PARACETAMOL KERN PHARMA [Concomitant]
     Indication: Spinal osteoarthritis
     Dosage: 1.0 GRAM (DECOCE)
     Route: 048
     Dates: start: 20130704

REACTIONS (1)
  - Sinus node dysfunction [Recovered/Resolved]

NARRATIVE: CASE EVENT DATE: 20230714
